FAERS Safety Report 8379823-2 (Version None)
Quarter: 2012Q1

REPORT INFORMATION
  Report Type: 
  Country: None (occurrence: None)
  Receive Date: 20120323
  Receipt Date: 20110413
  Transmission Date: 20120608
  Serious: Yes (Hospitalization)
  Sender: FDA-Public Use
  Company Number: 163-21880-11041787

PATIENT
  Age: 59 Year
  Sex: Male

DRUGS (15)
  1. POTASSIUM CHLORIDE (POTASSIUM CHLORIDE) (PILL) [Concomitant]
  2. TACROLIMUS (TACROLIMUS) (CAPSULES) [Concomitant]
  3. FLUDROCORTISONE (FLUDROCORTISONE) (TABLETS) [Concomitant]
  4. MIDODRINE (MIDODRINE) (TABLETS) [Concomitant]
  5. SULFAMETHOXAZOLE/ TRIMETHOPRIM (BACTRIM) (TABLETS) [Concomitant]
  6. CITALOPRAM HYDROBROMIDE [Concomitant]
  7. LEVAQUIN [Concomitant]
  8. PRAVASTATIN (PRAVASTATIN) (TABLETS) [Concomitant]
  9. ZOLPIDEM TARTRATE [Concomitant]
  10. TORSEMIDE (TORASEMIDE) (UNKNOWN) [Concomitant]
  11. DEXAMETHASONE [Concomitant]
  12. REVLIMID [Suspect]
     Indication: MULTIPLE MYELOMA
     Dosage: 20 MG, DAYS 1-14 EVERY 21 DAYS, PO
     Route: 048
     Dates: start: 20101210, end: 20110301
  13. PREDNISONE [Concomitant]
  14. VALACYLOVIR (VALACICLOVIR) (TABLETS) [Concomitant]
  15. PANTOPRAZOLE (PANTOPRAZOLE) (TABLETS) [Concomitant]

REACTIONS (2)
  - LOBAR PNEUMONIA [None]
  - FEBRILE NEUTROPENIA [None]
